FAERS Safety Report 8910666 (Version 1)
Quarter: 2012Q4

REPORT INFORMATION
  Report Type: Spontaneous
  Country: GB (occurrence: None)
  Receive Date: 20121108
  Receipt Date: 20121108
  Transmission Date: 20130627
  Serious: Yes (Disabling, Other)
  Sender: FDA-Public Use
  Company Number: GER/UKI/12/0026504

PATIENT
  Sex: Male

DRUGS (4)
  1. FINASTERIDE (FINASTERIDE) [Suspect]
     Indication: MALE PATTERN BALDNESS
     Route: 048
     Dates: start: 2000, end: 201110
  2. LYMECYCLINE [Concomitant]
  3. PAROXETINE [Concomitant]
  4. VENLAFAXINE [Concomitant]

REACTIONS (9)
  - Withdrawal syndrome [None]
  - Weight decreased [None]
  - Suicidal ideation [None]
  - Skin wrinkling [None]
  - Skin atrophy [None]
  - Penile size reduced [None]
  - Facial pain [None]
  - Facial wasting [None]
  - Connective tissue disorder [None]
